FAERS Safety Report 9913141 (Version 1)
Quarter: 2014Q1

REPORT INFORMATION
  Report Type: Spontaneous
  Country: NL (occurrence: NL)
  Receive Date: 20140220
  Receipt Date: 20140220
  Transmission Date: 20141002
  Serious: Yes (Death)
  Sender: FDA-Public Use
  Company Number: NL-JNJFOC-20140209571

PATIENT
  Age: 28 Year
  Sex: Male

DRUGS (4)
  1. DOXORUBICIN [Suspect]
     Indication: CASTLEMAN^S DISEASE
     Route: 042
  2. CYCLOPHOSPHAMIDE [Suspect]
     Indication: CASTLEMAN^S DISEASE
     Route: 065
  3. VINCRISTINE [Suspect]
     Indication: CASTLEMAN^S DISEASE
     Route: 065
  4. PREDNISOLONE [Suspect]
     Indication: CASTLEMAN^S DISEASE
     Route: 065

REACTIONS (5)
  - Opportunistic infection [Fatal]
  - Muscle atrophy [Fatal]
  - Malaise [Fatal]
  - Drug ineffective [Unknown]
  - Off label use [Unknown]
